FAERS Safety Report 9483949 (Version 2)
Quarter: 2013Q3

REPORT INFORMATION
  Report Type: Report from Study
  Country: CN (occurrence: CN)
  Receive Date: 20130828
  Receipt Date: 20130828
  Transmission Date: 20140515
  Serious: Yes (Hospitalization, Other)
  Sender: FDA-Public Use
  Company Number: PHHO2010CN05700

PATIENT
  Age: 74 Year
  Sex: Female
  Weight: 51 kg

DRUGS (5)
  1. ALISKIREN [Suspect]
     Indication: CARDIOVASCULAR DISORDER
     Route: 048
     Dates: start: 20090112, end: 20100326
  2. HUMULIN [Concomitant]
  3. NIFEDIPINE [Concomitant]
     Dosage: UNK
     Dates: start: 200503, end: 20100328
  4. CAPTOPRIL [Concomitant]
     Dosage: UNK
     Dates: start: 200503
  5. METOPROLOL [Concomitant]
     Dosage: UNK
     Dates: start: 200503

REACTIONS (9)
  - Acute myocardial infarction [Recovering/Resolving]
  - Hypotension [Recovering/Resolving]
  - Dizziness [Recovering/Resolving]
  - Mitral valve incompetence [Not Recovered/Not Resolved]
  - Tricuspid valve incompetence [Not Recovered/Not Resolved]
  - Left ventricular dysfunction [Unknown]
  - Ventricular dyskinesia [Unknown]
  - Pulmonary hypertension [Not Recovered/Not Resolved]
  - Concomitant disease progression [Recovering/Resolving]
